FAERS Safety Report 7498506-4 (Version None)
Quarter: 2011Q2

REPORT INFORMATION
  Report Type: 
  Country: None (occurrence: None)
  Receive Date: 20110524
  Receipt Date: 20080728
  Transmission Date: 20111010
  Serious: Yes (Other)
  Sender: FDA-Public Use
  Company Number: US-BAYER-200829526NA

PATIENT
  Age: 63 Year
  Sex: Female
  Weight: 72.562 kg

DRUGS (21)
  1. FENTANYL [Concomitant]
  2. LABETALOL [Concomitant]
  3. NEURONTIN [Concomitant]
     Dosage: 300 MG
     Route: 048
  4. VYTORIN [Concomitant]
     Dosage: 10/80 MG
     Route: 048
  5. LASIX [Concomitant]
     Route: 048
  6. EFFEXOR XR [Concomitant]
     Dosage: 150 MG
     Route: 048
  7. FOSAMAX [Concomitant]
     Dosage: 70 MG
     Route: 048
  8. HEPARIN [Concomitant]
  9. TRASYLOL [Suspect]
     Indication: ANEURYSM REPAIR
  10. NORVASC [Concomitant]
     Dosage: 5 MG
     Route: 048
  11. NEXIUM [Concomitant]
     Dosage: 40 MG
     Route: 048
  12. VERSED [Concomitant]
  13. TRASYLOL [Suspect]
     Indication: CORONARY ARTERY BYPASS
     Dosage: 1 ML INITIAL DOSE
     Route: 042
     Dates: start: 20060203
  14. TOPROL-XL [Concomitant]
     Dosage: 50 MG, UNK
     Route: 048
  15. PLAVIX [Concomitant]
     Dosage: 75 MG
     Route: 048
  16. FLEXERIL [Concomitant]
  17. PLASMA [Concomitant]
     Dosage: 2 U, UNK
     Route: 042
     Dates: start: 20060203
  18. TRASYLOL [Suspect]
     Indication: VENTRICULAR SEPTAL DEFECT REPAIR
     Dosage: 200 ML THEN 50 ML/HR
     Route: 042
     Dates: end: 20060203
  19. BUMEX [Concomitant]
     Dosage: 1 MG
     Route: 048
  20. RED BLOOD CELLS, CONCENTRATED [Concomitant]
     Dosage: 2 U, UNK
     Route: 042
     Dates: start: 20060203
  21. PLATELETS [Concomitant]
     Dosage: 1 U, UNK
     Route: 042
     Dates: start: 20060203

REACTIONS (11)
  - FEAR [None]
  - PAIN [None]
  - ANHEDONIA [None]
  - RENAL INJURY [None]
  - RENAL FAILURE [None]
  - ANXIETY [None]
  - INJURY [None]
  - MYOCARDIAL INFARCTION [None]
  - UNEVALUABLE EVENT [None]
  - RENAL IMPAIRMENT [None]
  - STRESS [None]
